FAERS Safety Report 14941786 (Version 1)
Quarter: 2018Q2

REPORT INFORMATION
  Report Type: Spontaneous
  Country: US (occurrence: US)
  Receive Date: 20180527
  Receipt Date: 20180527
  Transmission Date: 20180711
  Serious: No
  Sender: FDA-Public Use
  Company Number: US-JNJFOC-20180514581

PATIENT
  Sex: Female
  Weight: 71.22 kg

DRUGS (1)
  1. TREMFYA [Suspect]
     Active Substance: GUSELKUMAB
     Indication: PSORIASIS
     Dosage: 0,4 AND EVERY 8 WEEKS
     Route: 058

REACTIONS (1)
  - Malaise [Unknown]
